FAERS Safety Report 13877869 (Version 3)
Quarter: 2017Q4

REPORT INFORMATION
  Report Type: Report from Study
  Country: CA (occurrence: CA)
  Receive Date: 20170817
  Receipt Date: 20171005
  Transmission Date: 20180320
  Serious: Yes (Other)
  Sender: FDA-Public Use
  Company Number: CA-JNJFOC-20170811187

PATIENT
  Age: 24 Year
  Sex: Male
  Weight: 78 kg

DRUGS (3)
  1. PREDNISONE. [Concomitant]
     Active Substance: PREDNISONE
     Route: 048
  2. PREDNISONE. [Concomitant]
     Active Substance: PREDNISONE
     Route: 048
  3. REMICADE [Suspect]
     Active Substance: INFLIXIMAB
     Indication: COLITIS ULCERATIVE
     Dosage: ALSO REPORTED AS 10 MG/KG
     Route: 042
     Dates: start: 20160722, end: 20170922

REACTIONS (5)
  - Drug ineffective [Unknown]
  - Frequent bowel movements [Unknown]
  - Off label use [Unknown]
  - Melaena [Unknown]
  - Product use issue [Unknown]

NARRATIVE: CASE EVENT DATE: 20160722
